FAERS Safety Report 9479201 (Version 1)
Quarter: 2013Q3

REPORT INFORMATION
  Report Type: Spontaneous
  Country: FR (occurrence: FR)
  Receive Date: 20130827
  Receipt Date: 20130827
  Transmission Date: 20140515
  Serious: Yes (Other)
  Sender: FDA-Public Use
  Company Number: FR-WATSON-2013-14683

PATIENT
  Age: 54 Year
  Sex: Male

DRUGS (1)
  1. BACLOFEN (UNKNOWN) [Suspect]
     Indication: PRODUCT USED FOR UNKNOWN INDICATION
     Dosage: 50 MG, UNK
     Route: 048

REACTIONS (6)
  - Hallucination [Unknown]
  - Delirium [Unknown]
  - Confusional state [Unknown]
  - Sinus tachycardia [Unknown]
  - Dyskinesia [Unknown]
  - Medication error [Unknown]
